FAERS Safety Report 6782815-8 (Version None)
Quarter: 2010Q2

REPORT INFORMATION
  Report Type: 
  Country: None (occurrence: None)
  Receive Date: 20100616
  Receipt Date: 20100601
  Transmission Date: 20101027
  Serious: Yes (Other)
  Sender: FDA-Public Use
  Company Number: 2010SCPR001179

PATIENT

DRUGS (1)
  1. VERAPAMIL [Suspect]
     Indication: DRUG USE FOR UNKNOWN INDICATION
     Dosage: 4.8 G, ORAL
     Route: 048

REACTIONS (6)
  - ATRIOVENTRICULAR BLOCK [None]
  - CARDIOTOXICITY [None]
  - DRUG TOXICITY [None]
  - GRAND MAL CONVULSION [None]
  - HYPOTENSION [None]
  - NON-CARDIOGENIC PULMONARY OEDEMA [None]
